FAERS Safety Report 5031357-9 (Version None)
Quarter: 2006Q2

REPORT INFORMATION
  Report Type: 
  Country: None (occurrence: None)
  Receive Date: 20060615
  Receipt Date: 20060608
  Transmission Date: 20061013
  Serious: Yes (Hospitalization, Other)
  Sender: FDA-Public Use
  Company Number: 200510836BVD

PATIENT
  Age: 72 Year
  Sex: Male
  Weight: 95 kg

DRUGS (1)
  1. AVELOX [Suspect]
     Indication: BRONCHITIS BACTERIAL
     Dosage: 400 MG, QD, ORAL
     Route: 048
     Dates: start: 20050608, end: 20050609

REACTIONS (5)
  - ASTHENIA [None]
  - DEAFNESS BILATERAL [None]
  - FALL [None]
  - THERAPY NON-RESPONDER [None]
  - URINARY INCONTINENCE [None]
